FAERS Safety Report 24166155 (Version 1)
Quarter: 2024Q3

REPORT INFORMATION
  Report Type: Spontaneous
  Country: IT (occurrence: IT)
  Receive Date: 20240802
  Receipt Date: 20240802
  Transmission Date: 20241016
  Serious: Yes (Other)
  Sender: REGENERON
  Company Number: None

PATIENT
  Age: 86 Year
  Sex: Female

DRUGS (10)
  1. EYLEA [Suspect]
     Active Substance: AFLIBERCEPT
     Indication: Neovascular age-related macular degeneration
     Dosage: 1 DF, SOLUTION FOR INJECTION, 40MG/ML
     Route: 031
     Dates: start: 20220131, end: 20220131
  2. EYLEA [Suspect]
     Active Substance: AFLIBERCEPT
     Dosage: 1 DF, SOLUTION FOR INJECTION, 40MG/ML
     Route: 031
     Dates: start: 20220328, end: 20220328
  3. EYLEA [Suspect]
     Active Substance: AFLIBERCEPT
     Dosage: 1 DF, SOLUTION FOR INJECTION, 40MG/ML
     Route: 031
     Dates: start: 20220502, end: 20220502
  4. EYLEA [Suspect]
     Active Substance: AFLIBERCEPT
     Dosage: 1 DF, SOLUTION FOR INJECTION, 40MG/ML
     Route: 031
     Dates: start: 20221024, end: 20221024
  5. EYLEA [Suspect]
     Active Substance: AFLIBERCEPT
     Dosage: 1 DF, SOLUTION FOR INJECTION, 40MG/ML
     Route: 031
     Dates: start: 20230403, end: 20230403
  6. EYLEA [Suspect]
     Active Substance: AFLIBERCEPT
     Dosage: 1 DF, SOLUTION FOR INJECTION, 40MG/ML
     Route: 031
     Dates: start: 20230912, end: 20230912
  7. EYLEA [Suspect]
     Active Substance: AFLIBERCEPT
     Dosage: 1 DF, SOLUTION FOR INJECTION, 40MG/ML
     Route: 031
     Dates: start: 20231116, end: 20231116
  8. EYLEA [Suspect]
     Active Substance: AFLIBERCEPT
     Dosage: 1 DF, SOLUTION FOR INJECTION, 40MG/ML
     Route: 031
     Dates: start: 20240129, end: 20240129
  9. EYLEA [Suspect]
     Active Substance: AFLIBERCEPT
     Dosage: 1 DF, SOLUTION FOR INJECTION, 40MG/ML
     Route: 031
     Dates: start: 20240506, end: 20240506
  10. OLMESARTAN MEDOXOMIL E IDROCLOROTIAZIDE ALTER [Concomitant]
     Indication: Hypertension
     Dosage: ASSOCIATION OF ACTIVE INGREDIENTS, DOSAGE 20/5
     Route: 048

REACTIONS (2)
  - Subretinal fluid [Not Recovered/Not Resolved]
  - Therapeutic product effect decreased [Not Recovered/Not Resolved]

NARRATIVE: CASE EVENT DATE: 20240503
